FAERS Safety Report 7162771-3 (Version None)
Quarter: 2010Q4

REPORT INFORMATION
  Report Type: 
  Country: None (occurrence: None)
  Receive Date: 20101215
  Receipt Date: 20091215
  Transmission Date: 20110411
  Serious: Yes (Other)
  Sender: FDA-Public Use
  Company Number: GB-PFIZER INC-2009310979

PATIENT

DRUGS (1)
  1. EPANUTIN [Suspect]
     Dosage: 50 MG, 6 TABLETS AT NIGHT

REACTIONS (1)
  - GASTROSTOMY TUBE INSERTION [None]
